FAERS Safety Report 4548432-5 (Version None)
Quarter: 2005Q1

REPORT INFORMATION
  Report Type: 
  Country: None (occurrence: None)
  Receive Date: 20050106
  Receipt Date: 20050106
  Transmission Date: 20050727
  Serious: Yes (Death, Disabling)
  Sender: FDA-Public Use
  Company Number: None

PATIENT
  Age: 70 Year
  Sex: Female
  Weight: 36.9682 kg

DRUGS (3)
  1. COMBIVENT [Suspect]
     Indication: INHALATION THERAPY
     Dosage: 2 INHALATION 4 TIMES A DAY
     Route: 055
     Dates: start: 20011106
  2. COMBIVENT [Suspect]
     Indication: OXYGEN SUPPLEMENTATION
     Dosage: 2 INHALATION 4 TIMES A DAY
     Route: 055
     Dates: start: 20011106
  3. COMBIVENT [Suspect]

REACTIONS (7)
  - BLINDNESS [None]
  - COMA [None]
  - DYSPHONIA [None]
  - EYE DISORDER [None]
  - MEDICATION ERROR [None]
  - OTORRHOEA [None]
  - SCREAMING [None]
